FAERS Safety Report 7511578-3 (Version None)
Quarter: 2011Q2

REPORT INFORMATION
  Report Type: 
  Country: None (occurrence: None)
  Receive Date: 20110531
  Receipt Date: 20110523
  Transmission Date: 20111010
  Serious: Yes (Other)
  Sender: FDA-Public Use
  Company Number: BR-PFIZER INC-2011005936

PATIENT
  Sex: Female
  Weight: 63 kg

DRUGS (8)
  1. CITONEURIN [Concomitant]
     Dosage: UNK
     Dates: start: 20070301
  2. DIPYRONE [Concomitant]
     Dosage: UNK
  3. SCOPOLAMINE [Concomitant]
     Dosage: UNK
  4. DEPO-PROVERA [Suspect]
     Indication: MENSTRUAL DISCOMFORT
  5. COMPLEX B [Concomitant]
     Dosage: UNK
     Dates: start: 20070301
  6. DEPO-PROVERA [Suspect]
     Indication: OFF LABEL USE
     Dosage: 150 MG, EVERY 3 MONTHS
     Route: 030
     Dates: start: 20070101
  7. CENTRUM [Concomitant]
     Dosage: UNK
     Dates: start: 20070301
  8. ALPRAZOLAM [Concomitant]
     Dosage: UNK
     Dates: start: 20070301

REACTIONS (3)
  - AMENORRHOEA [None]
  - ANAEMIA [None]
  - POST PROCEDURAL HAEMORRHAGE [None]
